FAERS Safety Report 11049451 (Version 1)
Quarter: 2015Q2

REPORT INFORMATION
  Report Type: Report from Study
  Country: CO (occurrence: CO)
  Receive Date: 20150420
  Receipt Date: 20150420
  Transmission Date: 20150821
  Serious: Yes (Death)
  Sender: FDA-Public Use
  Company Number: PHHY2015CO045433

PATIENT
  Sex: Female

DRUGS (1)
  1. EXJADE [Suspect]
     Active Substance: DEFERASIROX
     Indication: MYELODYSPLASTIC SYNDROME
     Dosage: 2 DF, QD
     Route: 065

REACTIONS (5)
  - Myelodysplastic syndrome [Fatal]
  - Urinary tract infection [Unknown]
  - Disease progression [Fatal]
  - Malaise [Unknown]
  - Respiratory arrest [Fatal]
